FAERS Safety Report 20986728 (Version 1)
Quarter: 2022Q2

REPORT INFORMATION
  Report Type: Spontaneous
  Country: US (occurrence: None)
  Receive Date: 20220617
  Receipt Date: 20220617
  Transmission Date: 20220720
  Serious: No
  Sender: FDA-Public Use
  Company Number: None

PATIENT
  Age: 33 Year
  Sex: Female
  Weight: 51.3 kg

DRUGS (5)
  1. AIMOVIG [Suspect]
     Active Substance: ERENUMAB-AOOE
     Indication: Migraine
     Dates: start: 20210701, end: 20211101
  2. NURTEC ODT [Suspect]
     Active Substance: RIMEGEPANT SULFATE
  3. HYDROXYZINE [Concomitant]
     Active Substance: HYDROXYZINE HYDROCHLORIDE
  4. SPIRONOLACTONE [Concomitant]
     Active Substance: SPIRONOLACTONE
  5. ALLEGRA [Concomitant]
     Active Substance: FEXOFENADINE HYDROCHLORIDE

REACTIONS (10)
  - Constipation [None]
  - Alopecia [None]
  - Decreased appetite [None]
  - Nausea [None]
  - Vomiting [None]
  - Weight decreased [None]
  - Neurological symptom [None]
  - Vertigo [None]
  - Dizziness [None]
  - Hypoaesthesia [None]

NARRATIVE: CASE EVENT DATE: 20211001
